FAERS Safety Report 21280325 (Version 6)
Quarter: 2025Q2

REPORT INFORMATION
  Report Type: Report from Study
  Country: JP (occurrence: JP)
  Receive Date: 20220901
  Receipt Date: 20250606
  Transmission Date: 20250717
  Serious: Yes (Death, Hospitalization, Other)
  Sender: ASTELLAS
  Company Number: JP-ASTELLAS-2022JP007721

PATIENT
  Age: 78 Year
  Sex: Female
  Weight: 33 kg

DRUGS (7)
  1. PADCEV [Suspect]
     Active Substance: ENFORTUMAB VEDOTIN-EJFV
     Indication: Transitional cell carcinoma
     Route: 042
     Dates: start: 20220302, end: 20220414
  2. PADCEV [Suspect]
     Active Substance: ENFORTUMAB VEDOTIN-EJFV
     Route: 042
     Dates: start: 20220509, end: 20220509
  3. PREDONINE [Concomitant]
     Active Substance: PREDNISOLONE
     Indication: Skin disorder
     Route: 048
     Dates: start: 20220412, end: 20220425
  4. PREDONINE [Concomitant]
     Active Substance: PREDNISOLONE
     Dosage: 10 MG, ONCE DAILY
     Route: 048
     Dates: start: 20220426, end: 20220505
  5. PREDONINE [Concomitant]
     Active Substance: PREDNISOLONE
     Dosage: 5 MG, ONCE DAILY
     Route: 048
     Dates: start: 20220506, end: 20220509
  6. BEPOTASTINE BESYLATE [Concomitant]
     Active Substance: BEPOTASTINE BESYLATE
     Indication: Skin disorder
     Route: 048
     Dates: start: 20220412, end: 20220514
  7. BETAMETHASONE DIPROPIONATE [Concomitant]
     Active Substance: BETAMETHASONE DIPROPIONATE
     Indication: Skin disorder
     Route: 061
     Dates: start: 20220412, end: 20220514

REACTIONS (4)
  - Interstitial lung disease [Fatal]
  - Skin disorder [Not Recovered/Not Resolved]
  - Product use issue [Unknown]
  - Off label use [Unknown]

NARRATIVE: CASE EVENT DATE: 20220331
